FAERS Safety Report 10007391 (Version 2)
Quarter: 2014Q2

REPORT INFORMATION
  Report Type: Spontaneous
  Country: JP (occurrence: JP)
  Receive Date: 20140313
  Receipt Date: 20140429
  Transmission Date: 20141212
  Serious: Yes (Other)
  Sender: FDA-Public Use
  Company Number: JP-GLAXOSMITHKLINE-B0966860A

PATIENT
  Age: 38 Year
  Sex: Female

DRUGS (2)
  1. RELENZA [Suspect]
     Indication: INFLUENZA
     Dosage: 10MG TWICE PER DAY
     Route: 055
     Dates: start: 20140117, end: 20140119
  2. UNKNOWN DRUG FOR TREATMENT COMMON COLD [Concomitant]
     Indication: NASOPHARYNGITIS
     Route: 065

REACTIONS (9)
  - Toxic skin eruption [Recovering/Resolving]
  - Eczema [Recovering/Resolving]
  - Alopecia [Unknown]
  - Rash generalised [Recovering/Resolving]
  - Depression [Unknown]
  - Pruritus generalised [Recovered/Resolved]
  - Generalised erythema [Recovering/Resolving]
  - Exposure during pregnancy [Unknown]
  - Product quality issue [Unknown]
